FAERS Safety Report 9036469 (Version 1)
Quarter: 2013Q1

REPORT INFORMATION
  Report Type: Spontaneous
  Country: US (occurrence: None)
  Receive Date: 20130122
  Receipt Date: 20130122
  Transmission Date: 20140127
  Serious: Yes (Hospitalization, Other)
  Sender: FDA-Public Use
  Company Number: None

PATIENT
  Age: 53 Year
  Sex: Male
  Weight: 113.4 kg

DRUGS (1)
  1. CYMBALTA [Suspect]
     Indication: BACK PAIN
     Dosage: 1 CAPSULE DAILY PO
     Route: 048
     Dates: start: 20120904, end: 20121121

REACTIONS (11)
  - Depression [None]
  - Hallucination [None]
  - Mood altered [None]
  - Abnormal behaviour [None]
  - Irritability [None]
  - Aggression [None]
  - Hostility [None]
  - Confusional state [None]
  - Muscle twitching [None]
  - Sexual dysfunction [None]
  - Suicidal ideation [None]
